FAERS Safety Report 5635085-8 (Version None)
Quarter: 2008Q1

REPORT INFORMATION
  Report Type: 
  Country: None (occurrence: None)
  Receive Date: 20080131
  Receipt Date: 20071112
  Transmission Date: 20080703
  Serious: No
  Sender: FDA-Public Use
  Company Number: 163-21880-07110689

PATIENT
  Age: 75 Year
  Sex: Male

DRUGS (8)
  1. REVLIMID [Suspect]
     Indication: MULTIPLE MYELOMA
     Dosage: 25 MG, DAILY X 21 DAYS WITH 7 DAYS OFF, ORAL
     Route: 048
     Dates: start: 20070813
  2. DEXAMETHASONE TAB [Concomitant]
  3. BACTRIM [Concomitant]
  4. ACYCLOVIR [Concomitant]
  5. CENTRUM (CENTRUM) [Concomitant]
  6. SYNTHROID [Concomitant]
  7. PROCARDIA [Concomitant]
  8. ASPIRIN [Concomitant]

REACTIONS (2)
  - DIARRHOEA [None]
  - INSOMNIA [None]
